FAERS Safety Report 6320747-X (Version None)
Quarter: 2009Q3

REPORT INFORMATION
  Report Type: 
  Country: None (occurrence: None)
  Receive Date: 20090822
  Receipt Date: 20081208
  Transmission Date: 20100115
  Serious: No
  Sender: FDA-Public Use
  Company Number: US-ABBOTT-08P-163-0491605-00

PATIENT
  Sex: Male
  Weight: 95.34 kg

DRUGS (8)
  1. NIASPAN [Suspect]
     Indication: HIGH DENSITY LIPOPROTEIN DECREASED
     Dates: start: 20081001, end: 20081202
  2. BISTOLIC [Concomitant]
     Indication: BLOOD PRESSURE
     Dates: start: 20080701
  3. SIMVASTATIN [Concomitant]
     Indication: BLOOD CHOLESTEROL
     Dates: start: 20060101
  4. SYNTHROID [Concomitant]
     Indication: THYROID DISORDER
     Dates: start: 19900101
  5. PANTOPRAZOLE SODIUM [Concomitant]
     Indication: GASTRIC DISORDER
  6. PLAVIX [Concomitant]
     Indication: STENT PLACEMENT
     Dates: start: 20080701
  7. ASPIRIN [Concomitant]
     Indication: DRUG USE FOR UNKNOWN INDICATION
  8. TESTIM CREAM [Concomitant]
     Indication: DRUG USE FOR UNKNOWN INDICATION
     Dosage: 1%

REACTIONS (6)
  - DIZZINESS [None]
  - FLUSHING [None]
  - GENERALISED ERYTHEMA [None]
  - MALAISE [None]
  - PARAESTHESIA [None]
  - SWELLING FACE [None]
